FAERS Safety Report 19412918 (Version 1)
Quarter: 2021Q2

REPORT INFORMATION
  Report Type: Spontaneous
  Country: IL (occurrence: IL)
  Receive Date: 20210614
  Receipt Date: 20210614
  Transmission Date: 20210717
  Serious: Yes (Hospitalization, Other)
  Sender: FDA-Public Use
  Company Number: IL-LUPIN PHARMACEUTICALS INC.-2021-09385

PATIENT
  Age: 26 Year
  Sex: Female

DRUGS (2)
  1. DIMETHYL FUMARATE [Suspect]
     Active Substance: DIMETHYL FUMARATE
     Dosage: 120 MILLIGRAM, BID
     Route: 065
  2. DIMETHYL FUMARATE [Suspect]
     Active Substance: DIMETHYL FUMARATE
     Indication: RELAPSING MULTIPLE SCLEROSIS
     Dosage: UNK, INITIAL DOSE
     Route: 065

REACTIONS (1)
  - Drug-induced liver injury [Recovered/Resolved]
